FAERS Safety Report 22298360 (Version 1)
Quarter: 2023Q2

REPORT INFORMATION
  Report Type: Spontaneous
  Country: IT (occurrence: IT)
  Receive Date: 20230509
  Receipt Date: 20230509
  Transmission Date: 20230722
  Serious: Yes (Other)
  Sender: FDA-Public Use
  Company Number: None

PATIENT
  Age: 54 Year
  Sex: Female

DRUGS (1)
  1. VYXEOS [Suspect]
     Active Substance: CYTARABINE\DAUNORUBICIN
     Indication: Acute myeloid leukaemia
     Dosage: DAUNORUBICINA 44 MG/MQ E CITARABINA 100 MG/MQ IN DATA (PRIMA INDUZIONE)
     Route: 042
     Dates: start: 20230328, end: 20230401

REACTIONS (2)
  - Hepatic enzyme increased [Unknown]
  - Rash follicular [Recovering/Resolving]

NARRATIVE: CASE EVENT DATE: 20230404
